FAERS Safety Report 9980889 (Version 2)
Quarter: 2014Q2

REPORT INFORMATION
  Report Type: Spontaneous
  Country: IT (occurrence: IT)
  Receive Date: 20140307
  Receipt Date: 20140417
  Transmission Date: 20141212
  Serious: Yes (Hospitalization)
  Sender: FDA-Public Use
  Company Number: PHHY2014IT025668

PATIENT
  Age: 72 Year
  Sex: Male

DRUGS (2)
  1. IGREDEX [Suspect]
     Indication: PROSTATE CANCER
     Dosage: 50 MG, QD
     Dates: start: 20130701, end: 20140113
  2. DECAPEPTYL [Concomitant]
     Indication: PROSTATE CANCER
     Dosage: 11.25 MG, UNK
     Route: 030
     Dates: start: 20131207

REACTIONS (2)
  - Transient ischaemic attack [Recovered/Resolved with Sequelae]
  - Deep vein thrombosis [Recovered/Resolved with Sequelae]
